FAERS Safety Report 7238528-1 (Version None)
Quarter: 2011Q1

REPORT INFORMATION
  Report Type: 
  Country: None (occurrence: None)
  Receive Date: 20110121
  Receipt Date: 20110118
  Transmission Date: 20110831
  Serious: Yes (Hospitalization, Other)
  Sender: FDA-Public Use
  Company Number: US-ROXANE LABORATORIES, INC.-2011-RO-00079RO

PATIENT
  Age: 55 Year
  Sex: Male

DRUGS (4)
  1. MYCOPHENOLATE MOFETIL [Suspect]
     Indication: RENAL TRANSPLANT
  2. MYCOPHENOLIC ACID [Suspect]
     Indication: RENAL TRANSPLANT
     Dosage: 1080 MG
  3. PREDNISONE [Suspect]
     Indication: RENAL TRANSPLANT
  4. TACROLIMUS [Suspect]
     Indication: RENAL TRANSPLANT

REACTIONS (2)
  - HYPERGLYCAEMIA [None]
  - COLITIS [None]
